FAERS Safety Report 10814478 (Version 1)
Quarter: 2015Q1

REPORT INFORMATION
  Report Type: Report from Study
  Country: US (occurrence: US)
  Receive Date: 20150218
  Receipt Date: 20150218
  Transmission Date: 20150721
  Serious: No
  Sender: FDA-Public Use
  Company Number: US-ABBVIE-14K-163-1279984-00

PATIENT
  Age: 18 Year
  Sex: Male

DRUGS (4)
  1. ACNE [Concomitant]
     Active Substance: SALICYLIC ACID
     Indication: PRODUCT USED FOR UNKNOWN INDICATION
  2. HUMIRA [Suspect]
     Active Substance: ADALIMUMAB
     Indication: CROHN^S DISEASE
     Dates: start: 20140826, end: 20140826
  3. HUMIRA [Suspect]
     Active Substance: ADALIMUMAB
  4. CLARITIN [Concomitant]
     Active Substance: LORATADINE
     Indication: RASH

REACTIONS (2)
  - Pruritus [Recovering/Resolving]
  - Rash erythematous [Recovering/Resolving]

NARRATIVE: CASE EVENT DATE: 20140828
